FAERS Safety Report 15291163 (Version 1)
Quarter: 2018Q3

REPORT INFORMATION
  Report Type: Spontaneous
  Country: US (occurrence: US)
  Receive Date: 20180817
  Receipt Date: 20180817
  Transmission Date: 20181010
  Serious: No
  Sender: FDA-Public Use
  Company Number: US-SA-2018SA225704

PATIENT
  Sex: Female

DRUGS (5)
  1. AUBAGIO [Suspect]
     Active Substance: TERIFLUNOMIDE
     Dosage: 14MG
     Route: 048
     Dates: start: 20180421
  2. NAPROXEN. [Concomitant]
     Active Substance: NAPROXEN
     Dosage: 500MG
  3. MYRBETRIQ [Concomitant]
     Active Substance: MIRABEGRON
     Dosage: 250MG
  4. AMITRIPTYLIN [Concomitant]
     Active Substance: AMITRIPTYLINE
     Dosage: 75MG
  5. BACLOFEN. [Concomitant]
     Active Substance: BACLOFEN
     Dosage: 20MG

REACTIONS (1)
  - Myalgia [Recovered/Resolved]
